FAERS Safety Report 8120476-6 (Version None)
Quarter: 2012Q1

REPORT INFORMATION
  Report Type: 
  Country: None (occurrence: None)
  Receive Date: 20120207
  Receipt Date: 20120202
  Transmission Date: 20120608
  Serious: Yes (Other)
  Sender: FDA-Public Use
  Company Number: US-B.I. PHARMACEUTICALS,INC./RIDGEFIELD-2012-BP-02064BP

PATIENT
  Sex: Female

DRUGS (8)
  1. FLECAINIDE ACETATE [Concomitant]
     Indication: ATRIAL FIBRILLATION
     Dates: start: 20070101
  2. UNSPECIFIED PAIN MEDICATION [Concomitant]
     Indication: SCIATICA
  3. PRADAXA [Suspect]
     Indication: ATRIAL FIBRILLATION
     Dosage: 300 MG
     Route: 048
     Dates: start: 20110301
  4. VITAMIN D [Concomitant]
     Indication: SUPPLEMENTATION THERAPY
  5. MULTI-VITAMINS [Concomitant]
     Indication: SUPPLEMENTATION THERAPY
  6. LOVASTATIN [Concomitant]
     Indication: BLOOD CHOLESTEROL INCREASED
     Dates: start: 20070101
  7. VITAMIN B-12 [Concomitant]
     Indication: SUPPLEMENTATION THERAPY
  8. DILTIAZEM HCL [Concomitant]
     Indication: HYPERTENSION
     Dosage: 180 MG
     Route: 048
     Dates: start: 20070101

REACTIONS (2)
  - MASS [None]
  - CONTUSION [None]
